FAERS Safety Report 6006322-5 (Version None)
Quarter: 2008Q4

REPORT INFORMATION
  Report Type: 
  Country: None (occurrence: None)
  Receive Date: 20081217
  Receipt Date: 20081215
  Transmission Date: 20090506
  Serious: Yes (Other)
  Sender: FDA-Public Use
  Company Number: A0760341A

PATIENT
  Age: 54 Year
  Sex: Female

DRUGS (4)
  1. SEREVENT [Suspect]
     Indication: ASTHMA
     Dosage: 2PUFF TWICE PER DAY
     Route: 055
     Dates: start: 19940101
  2. CORTICOSTEROID [Concomitant]
  3. REGLAN [Concomitant]
  4. ZOFRAN [Concomitant]

REACTIONS (4)
  - ALOPECIA [None]
  - NAIL DISORDER [None]
  - ONYCHOCLASIS [None]
  - OVERDOSE [None]
